FAERS Safety Report 4982560-5 (Version None)
Quarter: 2006Q2

REPORT INFORMATION
  Report Type: 
  Country: None (occurrence: None)
  Receive Date: 20060421
  Receipt Date: 20060324
  Transmission Date: 20061013
  Serious: Yes (Death)
  Sender: FDA-Public Use
  Company Number: 06H-163-0306918-00

PATIENT
  Age: 24 Year
  Sex: Female
  Weight: 55 kg

DRUGS (2)
  1. PROPOFOL [Suspect]
     Indication: CONVULSION
  2. DOPAMINE HCL [Suspect]
     Indication: HYPOTENSION
     Dosage: INTRAVENOUS
     Route: 042

REACTIONS (2)
  - DRUG INTERACTION [None]
  - PROPOFOL INFUSION SYNDROME [None]
